FAERS Safety Report 8535152-5 (Version None)
Quarter: 2012Q3

REPORT INFORMATION
  Report Type: 
  Country: None (occurrence: None)
  Receive Date: 20120724
  Receipt Date: 20120717
  Transmission Date: 20120928
  Serious: Yes (Other)
  Sender: FDA-Public Use
  Company Number: BR-PFIZER INC-2012173076

PATIENT
  Age: 69 Year
  Sex: Female
  Weight: 70 kg

DRUGS (1)
  1. XALATAN [Suspect]
     Indication: INTRAOCULAR PRESSURE INCREASED
     Dosage: 3 UG (ONE DROP IN EACH EYE), 2X/DAY
     Route: 047
     Dates: start: 20100101

REACTIONS (4)
  - INTRAOCULAR PRESSURE INCREASED [None]
  - EYE DISORDER [None]
  - RETINAL DETACHMENT [None]
  - OVERDOSE [None]
